FAERS Safety Report 20811553 (Version 1)
Quarter: 2022Q2

REPORT INFORMATION
  Report Type: Spontaneous
  Country: US (occurrence: US)
  Receive Date: 20220510
  Receipt Date: 20220510
  Transmission Date: 20220721
  Serious: No
  Sender: FDA-Public Use
  Company Number: US-AMGEN-USASP2022072823

PATIENT
  Sex: Female

DRUGS (3)
  1. PROLIA [Suspect]
     Active Substance: DENOSUMAB
     Indication: Osteoporosis
     Dosage: UNK, UNK
     Route: 065
     Dates: start: 2011, end: 2014
  2. PROLIA [Suspect]
     Active Substance: DENOSUMAB
     Dosage: UNK, UNK
     Route: 065
  3. FORTEO [Concomitant]
     Active Substance: TERIPARATIDE
     Indication: Osteoporosis

REACTIONS (3)
  - Tooth extraction [Unknown]
  - Dental implantation [Unknown]
  - Psoriasis [Recovering/Resolving]
